FAERS Safety Report 6244373-6 (Version None)
Quarter: 2009Q2

REPORT INFORMATION
  Report Type: 
  Country: None (occurrence: None)
  Receive Date: 20090625
  Receipt Date: 20090612
  Transmission Date: 20091009
  Serious: Yes (Other)
  Sender: FDA-Public Use
  Company Number: PHEH2009US05516

PATIENT
  Weight: 128.12 kg

DRUGS (6)
  1. DIOVAN HCT [Suspect]
     Indication: HYPERTENSION
     Dosage: UNK
  2. ADVAIR HFA [Concomitant]
     Indication: ASTHMA
     Dosage: 250/50 TWICE DAILY
  3. ALBUTEROL [Concomitant]
     Indication: ASTHMA
  4. AMBIEN [Concomitant]
     Dosage: UNK
  5. FLONASE [Concomitant]
  6. CLARINEX                                /USA/ [Concomitant]

REACTIONS (4)
  - ANGIOEDEMA [None]
  - CHEST DISCOMFORT [None]
  - DEPRESSION [None]
  - SUICIDAL IDEATION [None]
